FAERS Safety Report 9932221 (Version 1)
Quarter: 2014Q1

REPORT INFORMATION
  Report Type: Report from Study
  Country: US (occurrence: US)
  Receive Date: 20140228
  Receipt Date: 20140228
  Transmission Date: 20141002
  Serious: No
  Sender: FDA-Public Use
  Company Number: US-ABBVIE-14P-163-1199123-00

PATIENT
  Age: 50 Year
  Sex: Male

DRUGS (2)
  1. ANDROGEL [Suspect]
     Indication: TESTICULAR FAILURE
     Dosage: 5 PUMPS DAILY DECREASED TO 4 PUMPS DAILY
     Route: 061
     Dates: start: 201307, end: 201310
  2. ANDROGEL [Suspect]
     Route: 061
     Dates: start: 201310

REACTIONS (3)
  - Fatigue [Not Recovered/Not Resolved]
  - Sluggishness [Not Recovered/Not Resolved]
  - Drug dose omission [Unknown]
